FAERS Safety Report 18081941 (Version 1)
Quarter: 2020Q3

REPORT INFORMATION
  Report Type: Spontaneous
  Country: IT (occurrence: IT)
  Receive Date: 20200729
  Receipt Date: 20200729
  Transmission Date: 20201103
  Serious: Yes (Other)
  Sender: FDA-Public Use
  Company Number: IT-AUROBINDO-AUR-APL-2020-036498

PATIENT
  Age: 54 Year
  Sex: Male

DRUGS (1)
  1. OXALIPLATIN. [Suspect]
     Active Substance: OXALIPLATIN
     Indication: COLON CANCER
     Dosage: 120 MILLIGRAM, CYCLICAL
     Route: 042
     Dates: start: 20200417, end: 20200613

REACTIONS (2)
  - Tremor [Recovering/Resolving]
  - Oromandibular dystonia [Recovering/Resolving]

NARRATIVE: CASE EVENT DATE: 20200613
